FAERS Safety Report 20952188 (Version 1)
Quarter: 2022Q2

REPORT INFORMATION
  Report Type: Spontaneous
  Country: US (occurrence: US)
  Receive Date: 20220613
  Receipt Date: 20220613
  Transmission Date: 20220721
  Serious: No
  Sender: FDA-Public Use
  Company Number: US-PFIZER INC-202200828407

PATIENT
  Age: 62 Year
  Sex: Female

DRUGS (1)
  1. IBRANCE [Suspect]
     Active Substance: PALBOCICLIB
     Dosage: 125 MG, CYCLIC (21 CONSECUTIVE DAYS FOLLOWED BY 7 DAYS OFF TREATMENT OF A 28 DAY CYCLE)
     Route: 048
     Dates: start: 20220530

REACTIONS (1)
  - Fatigue [Not Recovered/Not Resolved]
